FAERS Safety Report 6090982-7 (Version None)
Quarter: 2009Q1

REPORT INFORMATION
  Report Type: 
  Country: None (occurrence: None)
  Receive Date: 20090219
  Receipt Date: 20090219
  Transmission Date: 20090719
  Serious: No
  Sender: FDA-Public Use
  Company Number: None

PATIENT
  Sex: Female
  Weight: 72.1219 kg

DRUGS (2)
  1. SOTALOL HCL [Suspect]
  2. TOPROL-XL [Suspect]

REACTIONS (1)
  - ATRIAL FIBRILLATION [None]
